FAERS Safety Report 11178024 (Version 3)
Quarter: 2015Q4

REPORT INFORMATION
  Report Type: Report from Study
  Country: BR (occurrence: BR)
  Receive Date: 20150610
  Receipt Date: 20151008
  Transmission Date: 20160304
  Serious: Yes (Hospitalization, Other)
  Sender: FDA-Public Use
  Company Number: BR-ACTELION-A-CH2015-119159

PATIENT
  Age: 4 Year
  Sex: Female
  Weight: 19 kg

DRUGS (1)
  1. ZAVESCA [Suspect]
     Active Substance: MIGLUSTAT
     Indication: NIEMANN-PICK DISEASE
     Dosage: 100 MG, TID
     Route: 048
     Dates: start: 201211, end: 201407

REACTIONS (2)
  - Drug prescribing error [Unknown]
  - Seizure [Unknown]
